FAERS Safety Report 5724249-0 (Version None)
Quarter: 2008Q2

REPORT INFORMATION
  Report Type: 
  Country: None (occurrence: None)
  Receive Date: 20080430
  Receipt Date: 20080421
  Transmission Date: 20081010
  Serious: Yes (Other)
  Sender: FDA-Public Use
  Company Number: US-PFIZER INC-2008035066

PATIENT
  Age: 70 Year
  Sex: Female

DRUGS (1)
  1. CADUET [Suspect]
     Indication: BLOOD PRESSURE

REACTIONS (2)
  - GINGIVAL HYPERPLASIA [None]
  - TOOTH LOSS [None]
